FAERS Safety Report 12126078 (Version 3)
Quarter: 2016Q1

REPORT INFORMATION
  Report Type: Report from Study
  Country: BR (occurrence: BR)
  Receive Date: 20160229
  Receipt Date: 20160328
  Transmission Date: 20160526
  Serious: Yes (Life-Threatening, Hospitalization, Other)
  Sender: FDA-Public Use
  Company Number: PHHY2016BR025463

PATIENT
  Age: 71 Year
  Sex: Female
  Weight: 72 kg

DRUGS (2)
  1. ONBREZ [Suspect]
     Active Substance: INDACATEROL
     Indication: EMPHYSEMA
     Dosage: 150 UG, QD
     Route: 048
  2. ONBREZ [Suspect]
     Active Substance: INDACATEROL
     Dosage: 150 MG, QD
     Route: 055
     Dates: start: 20160222

REACTIONS (11)
  - Emphysema [Recovering/Resolving]
  - Dizziness [Recovering/Resolving]
  - Body height below normal [Unknown]
  - Feeling abnormal [Unknown]
  - Memory impairment [Unknown]
  - Head discomfort [Unknown]
  - Haemorrhage [Unknown]
  - Wheezing [Unknown]
  - Hypertension [Recovering/Resolving]
  - Gait disturbance [Recovering/Resolving]
  - Headache [Recovering/Resolving]

NARRATIVE: CASE EVENT DATE: 20160223
